FAERS Safety Report 4364500-5 (Version None)
Quarter: 2004Q2

REPORT INFORMATION
  Report Type: 
  Country: None (occurrence: None)
  Receive Date: 20040519
  Receipt Date: 20040510
  Transmission Date: 20050107
  Serious: Yes (Other)
  Sender: FDA-Public Use
  Company Number: US-JNJFOC-20030902120

PATIENT
  Age: 50 Year
  Sex: Female
  Weight: 81.6475 kg

DRUGS (7)
  1. ORTHO EVRA [Suspect]
     Indication: HEADACHE
     Dosage: 1 DOSE(S), 1 IN 1 WEEK, TRANSDERMAL
     Route: 062
     Dates: start: 20030727, end: 20030923
  2. ORTHO EVRA [Suspect]
     Indication: MENORRHAGIA
     Dosage: 1 DOSE(S), 1 IN 1 WEEK, TRANSDERMAL
     Route: 062
     Dates: start: 20030727, end: 20030923
  3. CALCIUM +D (CALCIUM) [Concomitant]
  4. MAGNESIUM (MAGNESIUM) [Concomitant]
  5. MULTIVITAMIN (MULTIVITAMINS) [Concomitant]
  6. ALBUTEROL [Concomitant]
  7. FERROUS SULFATE TAB [Concomitant]

REACTIONS (12)
  - ADENOMYOSIS [None]
  - ARRHYTHMIA [None]
  - CYSTOCELE [None]
  - DISEASE RECURRENCE [None]
  - DRUG INTOLERANCE [None]
  - DYSFUNCTIONAL UTERINE BLEEDING [None]
  - FATIGUE [None]
  - HAEMATOCRIT DECREASED [None]
  - HAEMOGLOBIN DECREASED [None]
  - MENORRHAGIA [None]
  - RECTOCELE [None]
  - UTERINE LEIOMYOMA [None]
